FAERS Safety Report 11681159 (Version 2)
Quarter: 2015Q4

REPORT INFORMATION
  Report Type: Spontaneous
  Country: US (occurrence: US)
  Receive Date: 20151027
  Receipt Date: 20151104
  Transmission Date: 20160304
  Serious: No
  Sender: FDA-Public Use
  Company Number: US-ELI_LILLY_AND_COMPANY-US201010007007

PATIENT
  Age: 61 Year
  Sex: Female

DRUGS (5)
  1. FORTEO [Suspect]
     Active Substance: TERIPARATIDE
     Dosage: 20 UG, DAILY (1/D)
  2. FORTEO [Suspect]
     Active Substance: TERIPARATIDE
     Dosage: 20 UG, DAILY (1/D)
  3. FORTEO [Suspect]
     Active Substance: TERIPARATIDE
     Indication: OSTEOPOROSIS
     Dosage: 20 UG, DAILY (1/D)
     Dates: start: 201007
  4. FORTEO [Suspect]
     Active Substance: TERIPARATIDE
     Dosage: 20 UG, QD
  5. FORTEO [Suspect]
     Active Substance: TERIPARATIDE
     Dosage: 20 UG, QD
     Route: 065
     Dates: end: 20110304

REACTIONS (13)
  - Muscle spasms [Unknown]
  - Intentional product misuse [Unknown]
  - Laryngitis [Recovering/Resolving]
  - Speech disorder [Unknown]
  - Insomnia [Unknown]
  - Injection site erythema [Unknown]
  - Scar [Unknown]
  - Injection site pain [Unknown]
  - Respiratory disorder [Unknown]
  - Blood pressure decreased [Unknown]
  - Diverticulitis [Unknown]
  - Gastrooesophageal reflux disease [Unknown]
  - Injection site bruising [Unknown]

NARRATIVE: CASE EVENT DATE: 201011
